FAERS Safety Report 6297286-8 (Version None)
Quarter: 2009Q3

REPORT INFORMATION
  Report Type: 
  Country: None (occurrence: None)
  Receive Date: 20090805
  Receipt Date: 20090723
  Transmission Date: 20100115
  Serious: Yes (Other)
  Sender: FDA-Public Use
  Company Number: NZ-PFIZER INC-2009245086

PATIENT
  Age: 48 Year

DRUGS (1)
  1. CHAMPIX [Suspect]

REACTIONS (2)
  - ANGINA PECTORIS [None]
  - ARTERIOSPASM CORONARY [None]
